FAERS Safety Report 11270747 (Version 1)
Quarter: 2015Q3

REPORT INFORMATION
  Report Type: Report from Study
  Country: SA (occurrence: SA)
  Receive Date: 20150714
  Receipt Date: 20150714
  Transmission Date: 20151125
  Serious: Yes (Hospitalization)
  Sender: FDA-Public Use
  Company Number: SA-PFIZER INC-2015229207

PATIENT
  Age: 2 Year

DRUGS (1)
  1. PHENYTOIN SODIUM. [Suspect]
     Active Substance: PHENYTOIN SODIUM
     Indication: EPILEPSY

REACTIONS (2)
  - Accidental exposure to product by child [Unknown]
  - Toxicity to various agents [Unknown]
